FAERS Safety Report 7452363-0 (Version None)
Quarter: 2011Q2

REPORT INFORMATION
  Report Type: 
  Country: None (occurrence: None)
  Receive Date: 20110502
  Receipt Date: 20110426
  Transmission Date: 20111010
  Serious: Yes (Other)
  Sender: FDA-Public Use
  Company Number: FR-US-EMD SERONO, INC.-7052786

PATIENT
  Sex: Female
  Weight: 49 kg

DRUGS (3)
  1. LOVENOX [Concomitant]
     Indication: ANTIPHOSPHOLIPID SYNDROME
     Route: 058
     Dates: start: 20110325
  2. CETROTIDE [Suspect]
     Indication: IN VITRO FERTILISATION
     Route: 058
     Dates: start: 20110329, end: 20110329
  3. MENOPUR [Concomitant]
     Indication: IN VITRO FERTILISATION
     Route: 048
     Dates: start: 20110325, end: 20110403

REACTIONS (2)
  - VIITH NERVE PARALYSIS [None]
  - HYPERSENSITIVITY [None]
